FAERS Safety Report 8598856-4 (Version None)
Quarter: 2012Q3

REPORT INFORMATION
  Report Type: 
  Country: None (occurrence: None)
  Receive Date: 20120816
  Receipt Date: 20120814
  Transmission Date: 20120928
  Serious: Yes (Hospitalization)
  Sender: FDA-Public Use
  Company Number: US-GLAXOSMITHKLINE-Z0016473A

PATIENT
  Age: 38 Year
  Sex: Female
  Weight: 72.5 kg

DRUGS (1)
  1. PAZOPANIB [Suspect]
     Indication: RENAL CELL CARCINOMA
     Dosage: 600MG PER DAY
     Route: 048
     Dates: start: 20120131

REACTIONS (2)
  - BLOOD CREATININE INCREASED [None]
  - ABDOMINAL PAIN [None]
